FAERS Safety Report 10900044 (Version 1)
Quarter: 2015Q1

REPORT INFORMATION
  Report Type: Spontaneous
  Country: US (occurrence: US)
  Receive Date: 20150310
  Receipt Date: 20150310
  Transmission Date: 20150721
  Serious: No
  Sender: FDA-Public Use
  Company Number: US-TEVA-540111USA

PATIENT
  Age: 52 Year
  Sex: Female

DRUGS (1)
  1. CAPECITABINE. [Suspect]
     Active Substance: CAPECITABINE
     Indication: CHEMOTHERAPY
     Dosage: 3000 MILLIGRAM DAILY; TAKE 2 WEEKS ON AND 1 WEEK OFF
     Route: 048

REACTIONS (2)
  - Anxiety [Unknown]
  - Depression [Unknown]
